FAERS Safety Report 9275285 (Version 1)
Quarter: 2013Q2

REPORT INFORMATION
  Report Type: Spontaneous
  Country: US (occurrence: None)
  Receive Date: 20130501
  Receipt Date: 20130501
  Transmission Date: 20140414
  Serious: Yes (Other)
  Sender: FDA-Public Use
  Company Number: None

PATIENT
  Age: 61 Year
  Sex: Male
  Weight: 79.38 kg

DRUGS (1)
  1. PRO AIR HFA - 90 MCG ALBUTEROL PER ACTUATION MANUFACTURED IN IRELAND - MARKETD BY TEVA [Suspect]
     Route: 055
     Dates: start: 20130314, end: 20130317

REACTIONS (4)
  - Fatigue [None]
  - Malaise [None]
  - Renal pain [None]
  - Dysuria [None]
